FAERS Safety Report 4725247-6 (Version None)
Quarter: 2005Q3

REPORT INFORMATION
  Report Type: 
  Country: None (occurrence: None)
  Receive Date: 20050725
  Receipt Date: 20050712
  Transmission Date: 20060218
  Serious: Yes (Other)
  Sender: FDA-Public Use
  Company Number: 2005102598

PATIENT
  Age: 77 Year
  Sex: Female
  Weight: 65.7716 kg

DRUGS (4)
  1. CELEBREX [Suspect]
     Indication: ARTHRITIS
     Dosage: ORAL
     Route: 048
  2. BEXTRA [Suspect]
     Indication: ARTHRITIS
     Dosage: 10 MG (10 M G, 1 IN 1 D), ORAL
     Route: 048
  3. ZETIA [Concomitant]
  4. VITAMINS (VITAMINS) [Concomitant]

REACTIONS (2)
  - KNEE ARTHROPLASTY [None]
  - TREATMENT NONCOMPLIANCE [None]
